FAERS Safety Report 5069527-6 (Version None)
Quarter: 2006Q3

REPORT INFORMATION
  Report Type: 
  Country: None (occurrence: None)
  Receive Date: 20060731
  Receipt Date: 20060630
  Transmission Date: 20061208
  Serious: Yes (Other)
  Sender: FDA-Public Use
  Company Number: 2006021003

PATIENT
  Age: 18 Year
  Sex: Female
  Weight: 57.6068 kg

DRUGS (5)
  1. ZOLOFT [Suspect]
     Indication: DEPRESSION
     Dates: start: 20051227
  2. ZOLOFT [Suspect]
     Indication: SCHIZOAFFECTIVE DISORDER
     Dates: start: 20051227
  3. GEODON [Suspect]
     Indication: PSYCHOTIC DISORDER
     Dosage: 160 MG (160 MG, 1 IN 1 D)
     Dates: start: 20060203
  4. GEODON [Suspect]
     Indication: SCHIZOAFFECTIVE DISORDER
     Dosage: 160 MG (160 MG, 1 IN 1 D)
     Dates: start: 20060203
  5. SEROQUEL [Concomitant]

REACTIONS (6)
  - DYSKINESIA [None]
  - HYPERSOMNIA [None]
  - JOINT DISLOCATION [None]
  - SOMNOLENCE [None]
  - TONGUE PARALYSIS [None]
  - VISION BLURRED [None]
